FAERS Safety Report 4506666-X (Version None)
Quarter: 2004Q4

REPORT INFORMATION
  Report Type: 
  Country: None (occurrence: None)
  Receive Date: 20041117
  Receipt Date: 20041112
  Transmission Date: 20050328
  Serious: Yes (Hospitalization)
  Sender: FDA-Public Use
  Company Number: KII-2004-0013975

PATIENT
  Age: 12 Month
  Sex: Female

DRUGS (1)
  1. OXYCODONE HCL [Suspect]
     Dosage: ORAL
     Route: 048
     Dates: start: 20041019

REACTIONS (3)
  - ACCIDENTAL EXPOSURE [None]
  - RESPIRATORY RATE DECREASED [None]
  - SOMNOLENCE [None]
